FAERS Safety Report 7049826-9 (Version None)
Quarter: 2010Q4

REPORT INFORMATION
  Report Type: 
  Country: None (occurrence: None)
  Receive Date: 20101018
  Receipt Date: 20101004
  Transmission Date: 20110411
  Serious: Yes (Hospitalization)
  Sender: FDA-Public Use
  Company Number: US-BAYER-201018978NA

PATIENT
  Age: 50 Year
  Sex: Female
  Weight: 82 kg

DRUGS (10)
  1. YAZ [Suspect]
     Indication: PRODUCT USED FOR UNKNOWN INDICATION
     Route: 048
     Dates: start: 20080201, end: 20090429
  2. YASMIN [Suspect]
     Indication: PRODUCT USED FOR UNKNOWN INDICATION
     Route: 048
  3. TRIAM [Concomitant]
     Indication: FLUID RETENTION
  4. IBUPROFEN [Concomitant]
  5. ASCORBIC ACID [Concomitant]
  6. OMEPRAZOLE [Concomitant]
     Indication: GASTROOESOPHAGEAL REFLUX DISEASE
     Dates: start: 19990101
  7. TRAMADOL HCL [Concomitant]
     Indication: PAIN
     Dates: start: 19990101
  8. PSC COMPAUND DIET PILL [Concomitant]
     Dates: start: 20080201, end: 20080401
  9. BIRTH CONTROL PILLS [Concomitant]
     Dates: start: 19760101, end: 19880101
  10. INTRAUTERINE DEVICE [Concomitant]
     Dates: start: 19800101

REACTIONS (3)
  - PAIN [None]
  - PULMONARY EMBOLISM [None]
  - THROMBOSIS [None]
